FAERS Safety Report 10736281 (Version 1)
Quarter: 2015Q1

REPORT INFORMATION
  Report Type: Spontaneous
  Country: US (occurrence: None)
  Receive Date: 20150122
  Receipt Date: 20150122
  Transmission Date: 20150721
  Serious: Yes (Other)
  Sender: FDA-Public Use
  Company Number: None

PATIENT
  Age: 59 Year
  Sex: Female
  Weight: 64.41 kg

DRUGS (1)
  1. LIPITOR [Suspect]
     Active Substance: ATORVASTATIN CALCIUM
     Indication: BLOOD CHOLESTEROL INCREASED
     Dosage: 1 PILL ONCE DAILY TAKEN BY MOUTH
     Route: 048
     Dates: start: 201405

REACTIONS (8)
  - Aphasia [None]
  - Swelling [None]
  - Tinnitus [None]
  - Muscle spasms [None]
  - Blood glucose increased [None]
  - Diabetes mellitus [None]
  - Disturbance in attention [None]
  - Confusional state [None]
